FAERS Safety Report 8685703 (Version 2)
Quarter: 2013Q1

REPORT INFORMATION
  Report Type: Report from Study
  Country: JP (occurrence: JP)
  Receive Date: 20120726
  Receipt Date: 20130102
  Transmission Date: 20140127
  Serious: Yes (Other)
  Sender: FDA-Public Use
  Company Number: JP-ROCHE-1091513

PATIENT
  Age: 0 Year
  Sex: Female
  Weight: 1.31 kg

DRUGS (6)
  1. TOCILIZUMAB [Suspect]
     Indication: JUVENILE IDIOPATHIC ARTHRITIS
     Route: 064
     Dates: start: 2011, end: 20110716
  2. TOCILIZUMAB [Suspect]
     Indication: JUVENILE IDIOPATHIC ARTHRITIS
     Route: 064
     Dates: start: 20110806, end: 20110903
  3. PREDONINE [Suspect]
     Indication: JUVENILE IDIOPATHIC ARTHRITIS
     Route: 064
     Dates: start: 2011
  4. ONEALFA [Concomitant]
     Dosage: FORM POR
     Route: 064
  5. MUCOSTA [Concomitant]
     Route: 064
     Dates: start: 2011
  6. EBASTEL [Concomitant]
     Indication: PROPHYLAXIS
     Dosage: THIS MEDICINE PREINITIATION ADMINISTERING
     Route: 064
     Dates: start: 2011, end: 20110903

REACTIONS (2)
  - Premature baby [Unknown]
  - Maternal exposure timing unspecified [Unknown]
